FAERS Safety Report 5595550-9 (Version None)
Quarter: 2008Q1

REPORT INFORMATION
  Report Type: 
  Country: None (occurrence: None)
  Receive Date: 20080118
  Receipt Date: 20080111
  Transmission Date: 20080703
  Serious: Yes (Other)
  Sender: FDA-Public Use
  Company Number: US-AVENTIS-200810240US

PATIENT
  Sex: Female

DRUGS (3)
  1. ALLEGRA-D 12 HOUR [Suspect]
     Dosage: DOSE: UNK
  2. ALLEGRA-D 12 HOUR [Suspect]
     Dosage: DOSE: UNK
  3. AZITHROMYCIN [Concomitant]
     Dosage: DOSE: UNK

REACTIONS (2)
  - DIZZINESS [None]
  - SYNCOPE [None]
